FAERS Safety Report 20152770 (Version 1)
Quarter: 2021Q4

REPORT INFORMATION
  Report Type: Spontaneous
  Country: US (occurrence: None)
  Receive Date: 20211206
  Receipt Date: 20211206
  Transmission Date: 20220303
  Serious: Yes (Hospitalization)
  Sender: FDA-Public Use
  Company Number: None

PATIENT
  Age: 64 Year
  Sex: Male
  Weight: 079.2 kg

DRUGS (3)
  1. BAMLANIVIMAB [Suspect]
     Active Substance: BAMLANIVIMAB
     Indication: COVID-19
     Dosage: FREQUENCY : DAILY;?
     Route: 040
     Dates: start: 20211201, end: 20211201
  2. ETESEVIMAB [Suspect]
     Active Substance: ETESEVIMAB
     Indication: COVID-19
     Dosage: OTHER FREQUENCY : ONCE;?
     Route: 040
     Dates: start: 20211201, end: 20211201
  3. sodium chloride 0.9 % [Concomitant]
     Dates: start: 20211201, end: 20211201

REACTIONS (4)
  - COVID-19 pneumonia [None]
  - Drug ineffective [None]
  - Hydronephrosis [None]
  - Nephrolithiasis [None]

NARRATIVE: CASE EVENT DATE: 20211202
